FAERS Safety Report 19220302 (Version 1)
Quarter: 2021Q2

REPORT INFORMATION
  Report Type: Report from Study
  Country: GB (occurrence: GB)
  Receive Date: 20210506
  Receipt Date: 20210506
  Transmission Date: 20210717
  Serious: Yes (Other)
  Sender: FDA-Public Use
  Company Number: GB-SUN PHARMACEUTICAL INDUSTRIES LTD-2021RR-294854

PATIENT
  Age: 75 Year
  Sex: Male

DRUGS (5)
  1. COTRIMOXAZOLE [Suspect]
     Active Substance: SULFAMETHOXAZOLE\TRIMETHOPRIM
     Indication: GRAFT INFECTION
     Dosage: UNK
     Route: 048
  2. CHLORAMPHENICOL [Suspect]
     Active Substance: CHLORAMPHENICOL
     Indication: GRAFT INFECTION
     Dosage: UNK
     Route: 048
  3. METRONIDAZOLE. [Suspect]
     Active Substance: METRONIDAZOLE
     Indication: GRAFT INFECTION
     Dosage: 400 MILLIGRAM, BID
     Route: 048
  4. A. AMOXYL [Suspect]
     Active Substance: AMOXICILLIN
     Indication: GRAFT INFECTION
     Dosage: 500 MILLIGRAM, TID
     Route: 048
  5. CIPROFLOXACIN. [Suspect]
     Active Substance: CIPROFLOXACIN
     Indication: GRAFT INFECTION
     Dosage: UNK
     Route: 048

REACTIONS (2)
  - Drug resistance [Unknown]
  - Hyperkalaemia [Unknown]
